FAERS Safety Report 9316532 (Version 1)
Quarter: 2013Q2

REPORT INFORMATION
  Report Type: Spontaneous
  Country: US (occurrence: US)
  Receive Date: 20130530
  Receipt Date: 20130530
  Transmission Date: 20140414
  Serious: No
  Sender: FDA-Public Use
  Company Number: US-PFIZER INC-2013161580

PATIENT
  Sex: Male

DRUGS (2)
  1. ADVIL [Suspect]
     Indication: HEADACHE
     Dosage: UNK
     Route: 048
  2. ADVIL [Suspect]
     Dosage: TWO CAPSULES, UNK
     Route: 048

REACTIONS (3)
  - Pruritus [Unknown]
  - Erythema [Unknown]
  - Flushing [Unknown]
